FAERS Safety Report 10224709 (Version 1)
Quarter: 2014Q2

REPORT INFORMATION
  Report Type: Spontaneous
  Country: US (occurrence: US)
  Receive Date: 20140609
  Receipt Date: 20140609
  Transmission Date: 20141212
  Serious: Yes (Other)
  Sender: FDA-Public Use
  Company Number: US-MYLANLABS-2014S1012695

PATIENT
  Age: 69 Year
  Sex: Female
  Weight: 147 kg

DRUGS (6)
  1. KETOROLAC [Suspect]
     Dosage: 30MG
     Route: 065
  2. ACICLOVIR [Suspect]
     Indication: HERPES ZOSTER
     Dosage: RECEIVED ONE IV DOSE OF 1.5G IN HOSPITAL?PO 5 TIMES DAILY
     Route: 048
  3. ACICLOVIR [Suspect]
     Indication: HERPES ZOSTER
     Dosage: RECEIVED ONE IV DOSE OF 1.5G (10MG/KG) IN HOSPITAL; DISCHARGED RECEIVING ORAL ACICLOVIR
     Route: 042
  4. ACICLOVIR [Suspect]
     Indication: HERPES ZOSTER
     Route: 048
  5. ONDANSETRON [Concomitant]
     Dosage: 4MG
     Route: 065
  6. PREDNISONE [Concomitant]
     Indication: ASTHMA
     Dosage: FREQUENT COURSES OF SYSTEMIC PREDNISONE
     Route: 065

REACTIONS (2)
  - Neurotoxicity [Recovered/Resolved]
  - Renal failure acute [Recovering/Resolving]
